FAERS Safety Report 7321730-8 (Version None)
Quarter: 2011Q1

REPORT INFORMATION
  Report Type: 
  Country: None (occurrence: None)
  Receive Date: 20110228
  Receipt Date: 20100712
  Transmission Date: 20110831
  Serious: No
  Sender: FDA-Public Use
  Company Number: US-PFIZER INC-2010088149

PATIENT
  Age: 64 Year
  Sex: Female

DRUGS (5)
  1. GEODON [Suspect]
     Dosage: 20 MG, DAILY
     Route: 048
  2. KLONOPIN [Concomitant]
     Dosage: 0.5 MG, AS NEEDED
     Route: 048
  3. WELCHOL [Concomitant]
     Indication: DIARRHOEA
     Dosage: 625 MG, DAILY
     Route: 048
  4. WELLBUTRIN [Concomitant]
     Dosage: 300 MG, DAILY
     Route: 048
  5. AMBIEN [Concomitant]
     Dosage: MG,UNK
     Route: 048

REACTIONS (5)
  - DIZZINESS [None]
  - THERAPY REGIMEN CHANGED [None]
  - HEADACHE [None]
  - NAUSEA [None]
  - MALAISE [None]
